FAERS Safety Report 8116646-3 (Version None)
Quarter: 2012Q1

REPORT INFORMATION
  Report Type: 
  Country: None (occurrence: None)
  Receive Date: 20120206
  Receipt Date: 20120126
  Transmission Date: 20120608
  Serious: Yes (Hospitalization)
  Sender: FDA-Public Use
  Company Number: PHHY2012CZ005672

PATIENT
  Sex: Male

DRUGS (18)
  1. INSULIN [Concomitant]
  2. KALNORMIN [Concomitant]
     Dosage: 1 G, UNK
  3. ENOXAPARIN SODIUM [Concomitant]
     Dosage: 0.6 UNK, UNK
  4. AGEN [Concomitant]
     Dosage: 5 MG, DAILY
  5. ANOPYRIN [Concomitant]
     Dosage: 100 MG, DAILY
  6. LEVOTHYROXINE SODIUM [Concomitant]
     Dosage: 50 MG, DAILY
  7. OMEPRAZOLE [Concomitant]
     Dosage: 20 MG, BID
  8. METFORMIN HYDROCHLORIDE [Concomitant]
  9. CALCIUM [Concomitant]
  10. NOVALGIN [Concomitant]
  11. ANTINEOPLASTIC AGENTS [Concomitant]
  12. FUROSEMIDE [Concomitant]
  13. HUMULIN R [Concomitant]
  14. ASPIRIN [Concomitant]
  15. SPIRONOLACTONE [Concomitant]
  16. HUMULIN N [Concomitant]
  17. AFINITOR [Suspect]
     Dosage: 10 MG DAILY
     Dates: start: 20111101, end: 20120101
  18. MAGNESIUM [Concomitant]

REACTIONS (8)
  - CARDIAC FAILURE [None]
  - COAGULOPATHY [None]
  - ANAEMIA [None]
  - GENERAL PHYSICAL HEALTH DETERIORATION [None]
  - RENAL FAILURE ACUTE [None]
  - DIABETES MELLITUS [None]
  - LABORATORY TEST ABNORMAL [None]
  - HYPERTENSION [None]
